FAERS Safety Report 9370173 (Version 5)
Quarter: 2013Q3

REPORT INFORMATION
  Report Type: Spontaneous
  Country: US (occurrence: US)
  Receive Date: 20130626
  Receipt Date: 20130905
  Transmission Date: 20140515
  Serious: No
  Sender: FDA-Public Use
  Company Number: US-VERTEX PHARMACEUTICALS INC-2013-007438

PATIENT
  Age: 60 Year
  Sex: Female
  Weight: 70 kg

DRUGS (10)
  1. INCIVEK [Suspect]
     Indication: HEPATITIS C
     Dosage: 750 MG, TID
     Route: 048
     Dates: start: 20130611, end: 20130730
  2. RIBAVIRIN [Suspect]
     Indication: HEPATITIS C
     Dosage: 600 MG AM; 400 MG PM, BID
     Route: 048
     Dates: start: 20130611
  3. RIBAVIRIN [Suspect]
     Dosage: 400 MG AM, 200 MG PM
     Route: 048
  4. RIBAVIRIN [Suspect]
     Dosage: 600 MG, QD
     Dates: end: 20130730
  5. PEGASYS [Suspect]
     Indication: HEPATITIS C
     Dosage: 180 ?G, QW
     Route: 058
     Dates: start: 20130614, end: 20130730
  6. THYROID MEDICATION [Concomitant]
     Indication: HYPOTHYROIDISM
     Dosage: UNK, PRN
     Route: 048
  7. MILK THISTLE [Concomitant]
     Indication: LIVER DISORDER
     Dosage: UNK, QD
     Route: 048
  8. OMEGA 3 FATTY ACIDS [Concomitant]
  9. FLAXSEED OIL [Concomitant]
  10. ARMOUR THYROID [Concomitant]
     Indication: HYPOTHYROIDISM
     Dosage: 120 MG, QD

REACTIONS (19)
  - Blood count abnormal [Not Recovered/Not Resolved]
  - Thyroid function test abnormal [Not Recovered/Not Resolved]
  - Musculoskeletal chest pain [Not Recovered/Not Resolved]
  - Gastrointestinal motility disorder [Not Recovered/Not Resolved]
  - Abdominal pain [Not Recovered/Not Resolved]
  - Abdominal discomfort [Not Recovered/Not Resolved]
  - Mucous stools [Not Recovered/Not Resolved]
  - Decreased appetite [Not Recovered/Not Resolved]
  - Fatigue [Not Recovered/Not Resolved]
  - Asthenia [Not Recovered/Not Resolved]
  - Syncope [Recovered/Resolved]
  - Rash macular [Recovered/Resolved]
  - Rash vesicular [Recovered/Resolved]
  - Vomiting [Not Recovered/Not Resolved]
  - Anorectal discomfort [Recovered/Resolved]
  - Anal pruritus [Recovered/Resolved]
  - Nausea [Not Recovered/Not Resolved]
  - Pruritus [Unknown]
  - Anaemia [Recovered/Resolved]
